FAERS Safety Report 4391617-1 (Version None)
Quarter: 2004Q3

REPORT INFORMATION
  Report Type: 
  Country: None (occurrence: None)
  Receive Date: 20040702
  Receipt Date: 20040426
  Transmission Date: 20050211
  Serious: Yes (Other)
  Sender: FDA-Public Use
  Company Number: 2004UW08357

PATIENT
  Age: 54 Year
  Sex: Male
  Weight: 115.6672 kg

DRUGS (4)
  1. CRESTOR [Suspect]
     Indication: BLOOD CHOLESTEROL INCREASED
     Dosage: 10 MG PO
     Route: 048
  2. COENZYME Q10 [Concomitant]
  3. MULTIVITAMIN [Concomitant]
  4. ECOTRIN [Concomitant]

REACTIONS (5)
  - CHEST PAIN [None]
  - CONSTIPATION [None]
  - DEPRESSION [None]
  - LOSS OF LIBIDO [None]
  - MYALGIA [None]
